FAERS Safety Report 9337368 (Version 1)
Quarter: 2013Q2

REPORT INFORMATION
  Report Type: Spontaneous
  Country: JP (occurrence: JP)
  Receive Date: 20130607
  Receipt Date: 20130607
  Transmission Date: 20140414
  Serious: Yes (Other)
  Sender: FDA-Public Use
  Company Number: JP-GLAXOSMITHKLINE-B0897256A

PATIENT
  Age: 56 Year
  Sex: Male

DRUGS (4)
  1. ZEFIX 100 [Suspect]
     Indication: PRODUCT USED FOR UNKNOWN INDICATION
     Route: 048
     Dates: start: 2002
  2. HEPSERA [Concomitant]
     Route: 048
  3. MIKELAN [Concomitant]
     Route: 065
  4. RESCULA [Concomitant]
     Route: 065

REACTIONS (4)
  - Rhabdomyolysis [Not Recovered/Not Resolved]
  - Muscular weakness [Not Recovered/Not Resolved]
  - Fall [Unknown]
  - Muscle atrophy [Unknown]
